FAERS Safety Report 6542027-X (Version None)
Quarter: 2010Q1

REPORT INFORMATION
  Report Type: 
  Country: None (occurrence: None)
  Receive Date: 20100119
  Receipt Date: 20100111
  Transmission Date: 20100710
  Serious: Yes (Other)
  Sender: FDA-Public Use
  Company Number: US-BAYER-201010891NA

PATIENT
  Age: 40 Year
  Sex: Female

DRUGS (1)
  1. MIRENA [Suspect]
     Indication: CONTRACEPTION
     Route: 015
     Dates: start: 20091201, end: 20100104

REACTIONS (6)
  - ABDOMINAL INFECTION [None]
  - ABDOMINAL PAIN LOWER [None]
  - NAUSEA [None]
  - SOMNOLENCE [None]
  - VAGINAL HAEMORRHAGE [None]
  - VOMITING [None]
